FAERS Safety Report 4808300-8 (Version None)
Quarter: 2005Q4

REPORT INFORMATION
  Report Type: 
  Country: None (occurrence: None)
  Receive Date: 20051021
  Receipt Date: 20040602
  Transmission Date: 20060501
  Serious: No
  Sender: FDA-Public Use
  Company Number: EWC040639592

PATIENT
  Age: 39 Year
  Sex: Male

DRUGS (4)
  1. ZYPREXA [Suspect]
     Indication: SCHIZOPHRENIA
     Dosage: 20 MG DAY
     Dates: start: 20031101
  2. NITRAZEPAM [Concomitant]
  3. OMEPRAZOLE [Concomitant]
  4. STESOLID (DIAZEPAM) [Concomitant]

REACTIONS (12)
  - ASPARTATE AMINOTRANSFERASE INCREASED [None]
  - BLOOD ALKALINE PHOSPHATASE INCREASED [None]
  - BLOOD AMYLASE DECREASED [None]
  - BLOOD CREATINE DECREASED [None]
  - BLOOD PROLACTIN INCREASED [None]
  - EOSINOPHIL COUNT INCREASED [None]
  - HAEMOGLOBIN INCREASED [None]
  - LYMPHOCYTE COUNT INCREASED [None]
  - MONOCYTE COUNT INCREASED [None]
  - NEUTROPHIL COUNT INCREASED [None]
  - PARANOIA [None]
  - WHITE BLOOD CELL COUNT INCREASED [None]
